FAERS Safety Report 20803881 (Version 1)
Quarter: 2022Q2

REPORT INFORMATION
  Report Type: Spontaneous
  Country: US (occurrence: US)
  Receive Date: 20220509
  Receipt Date: 20220509
  Transmission Date: 20220720
  Serious: No
  Sender: FDA-Public Use
  Company Number: US-NOVARTISTESTPH-NVSC2022US105255

PATIENT
  Sex: Male
  Weight: 88.45 kg

DRUGS (2)
  1. LEQVIO [Suspect]
     Active Substance: INCLISIRAN SODIUM
     Indication: Arthralgia
     Dosage: UNK UNK, QD
     Route: 030
     Dates: start: 20220421
  2. LEQVIO [Suspect]
     Active Substance: INCLISIRAN SODIUM
     Indication: Peripheral swelling

REACTIONS (2)
  - Arthralgia [Unknown]
  - Peripheral swelling [Unknown]
